FAERS Safety Report 21597053 (Version 1)
Quarter: 2022Q4

REPORT INFORMATION
  Report Type: Spontaneous
  Country: US (occurrence: US)
  Receive Date: 20221115
  Receipt Date: 20221115
  Transmission Date: 20230113
  Serious: Yes (Other)
  Sender: FDA-Public Use
  Company Number: US-AMNEAL PHARMACEUTICALS-2022-AMRX-00768

PATIENT
  Sex: Female
  Weight: 68.027 kg

DRUGS (8)
  1. ISOTRETINOIN [Suspect]
     Active Substance: ISOTRETINOIN
     Indication: Acne
     Dosage: 1 CAPSULES, DAILY
     Route: 048
     Dates: start: 20211214, end: 20220314
  2. EPINEPHRINE [Concomitant]
     Active Substance: EPINEPHRINE
     Indication: Arthropod sting
     Dosage: 0.3 MG/0.3 ML
     Route: 030
     Dates: start: 20210904, end: 20220404
  3. VITAMIN C [Concomitant]
     Active Substance: ASCORBIC ACID
     Indication: Product used for unknown indication
     Dosage: 1 DOSAGE FORM, DAILY
     Route: 048
  4. TYLENOL [Concomitant]
     Active Substance: ACETAMINOPHEN
     Indication: Pain
     Route: 048
  5. MOTRIN [Concomitant]
     Active Substance: IBUPROFEN
     Indication: Pain
     Dosage: 200-400 MG EVERY 4 HOURS AS NEEDED
     Route: 048
  6. ZOLOFT [Concomitant]
     Active Substance: SERTRALINE HYDROCHLORIDE
     Indication: Major depression
     Dosage: 1.5 TABLETS (75 MG), DAILY
     Route: 048
     Dates: start: 20220131, end: 20220315
  7. ZOLOFT [Concomitant]
     Active Substance: SERTRALINE HYDROCHLORIDE
     Dosage: 25 MILLIGRAM
     Route: 048
     Dates: start: 20210917, end: 20211222
  8. ZOLOFT [Concomitant]
     Active Substance: SERTRALINE HYDROCHLORIDE
     Dosage: 50 MILLIGRAM
     Route: 048
     Dates: start: 20211222, end: 20220107

REACTIONS (6)
  - Suicidal ideation [Recovering/Resolving]
  - Depression [Unknown]
  - Epistaxis [Unknown]
  - Cheilitis [Unknown]
  - Dry skin [Unknown]
  - Headache [Unknown]

NARRATIVE: CASE EVENT DATE: 20220101
